FAERS Safety Report 21381330 (Version 1)
Quarter: 2022Q3

REPORT INFORMATION
  Report Type: Spontaneous
  Country: AR (occurrence: AR)
  Receive Date: 20220927
  Receipt Date: 20220927
  Transmission Date: 20221027
  Serious: Yes (Disabling)
  Sender: FDA-Public Use
  Company Number: AR-PFIZER INC-PV202200071019

PATIENT
  Age: 67 Year
  Sex: Female

DRUGS (2)
  1. XELJANZ [Suspect]
     Active Substance: TOFACITINIB CITRATE
     Indication: Rheumatoid arthritis
     Dosage: 1 DF, 1X/DAY (ONE TABLET DAILY FOUR TIMES A WEEK AND TWO TABLETS DAILY THREE TIMES A WEEK)
     Dates: start: 20180104
  2. XELJANZ [Suspect]
     Active Substance: TOFACITINIB CITRATE
     Dosage: 2 DF, DAILY (ONE TABLET DAILY FOUR TIMES A WEEK AND TWO TABLETS DAILY THREE TIMES A WEEK)
     Dates: start: 20180104

REACTIONS (2)
  - Joint injury [Not Recovered/Not Resolved]
  - Off label use [Unknown]

NARRATIVE: CASE EVENT DATE: 20220901
